FAERS Safety Report 24644275 (Version 2)
Quarter: 2024Q4

REPORT INFORMATION
  Report Type: Spontaneous
  Country: US (occurrence: US)
  Receive Date: 20241120
  Receipt Date: 20241127
  Transmission Date: 20250115
  Serious: No
  Sender: LEO PHARM
  Company Number: US-LEO Pharma-375193

PATIENT
  Age: 49 Year
  Sex: Female

DRUGS (1)
  1. ADBRY [Suspect]
     Active Substance: TRALOKINUMAB-LDRM
     Indication: Urticaria
     Dosage: TREATMENT IS ONGOING
     Dates: start: 202308

REACTIONS (3)
  - Urticaria [Unknown]
  - Infection [Unknown]
  - Product use in unapproved indication [Unknown]
